FAERS Safety Report 25438339 (Version 1)
Quarter: 2025Q2

REPORT INFORMATION
  Report Type: Report from Study
  Country: CA (occurrence: CA)
  Receive Date: 20250616
  Receipt Date: 20250616
  Transmission Date: 20250717
  Serious: Yes (Hospitalization, Other)
  Sender: ROCHE
  Company Number: CA-ROCHE-10000308818

PATIENT

DRUGS (3)
  1. RITUXIMAB [Suspect]
     Active Substance: RITUXIMAB
     Indication: Nodular lymphocyte predominant Hodgkin lymphoma
     Route: 042
  2. RITUXIMAB [Suspect]
     Active Substance: RITUXIMAB
     Dosage: ON DAY 1 OF CYCLES 2-6. FOR 2 YEARS COULD BE ADMINISTERED?FOLLOWING THE COMPLETION OF BR.
     Route: 058
  3. BENDAMUSTINE [Suspect]
     Active Substance: BENDAMUSTINE
     Indication: Nodular lymphocyte predominant Hodgkin lymphoma
     Route: 042

REACTIONS (5)
  - Infection [Unknown]
  - Neutropenia [Unknown]
  - Rash [Unknown]
  - Infusion related reaction [Unknown]
  - Acute myeloid leukaemia [Unknown]
